FAERS Safety Report 8798383 (Version 1)
Quarter: 2012Q4

REPORT INFORMATION
  Report Type: 
  Country: US (occurrence: US)
  Receive Date: 20120920
  Receipt Date: 20120920
  Transmission Date: 20130627
  Serious: Yes (Death)
  Sender: FDA-Public Use
  Company Number: US-ROCHE-CID000000002101426

PATIENT
  Sex: Female

DRUGS (2)
  1. AVASTIN [Suspect]
     Indication: CERVIX CARCINOMA
     Route: 042
     Dates: start: 20080325, end: 20080506
  2. NAVELBINE [Concomitant]

REACTIONS (2)
  - Malaise [Unknown]
  - Disease progression [Fatal]
